FAERS Safety Report 10457288 (Version 3)
Quarter: 2016Q4

REPORT INFORMATION
  Report Type: Report from Study
  Country: US (occurrence: US)
  Receive Date: 20140916
  Receipt Date: 20161006
  Transmission Date: 20170206
  Serious: Yes (Hospitalization)
  Sender: FDA-Public Use
  Company Number: US-SANOFI-AVENTIS-2013SA095413

PATIENT
  Age: 61 Year
  Sex: Male
  Weight: 68.03 kg

DRUGS (1)
  1. AUBAGIO [Suspect]
     Active Substance: TERIFLUNOMIDE
     Indication: MULTIPLE SCLEROSIS
     Dosage: PREODUCT START DATE: ABOUT 15 DAYS AGO
     Route: 048
     Dates: start: 2012

REACTIONS (10)
  - Influenza like illness [Unknown]
  - Diarrhoea [Recovering/Resolving]
  - Urinary tract infection [Unknown]
  - Decreased appetite [Unknown]
  - Pyrexia [Unknown]
  - Back pain [Recovered/Resolved]
  - Muscular weakness [Recovering/Resolving]
  - Pain [Unknown]
  - General physical health deterioration [Not Recovered/Not Resolved]
  - Constipation [Unknown]

NARRATIVE: CASE EVENT DATE: 201309
